FAERS Safety Report 15431703 (Version 1)
Quarter: 2018Q3

REPORT INFORMATION
  Report Type: Spontaneous
  Country: IT (occurrence: IT)
  Receive Date: 20180926
  Receipt Date: 20180926
  Transmission Date: 20181010
  Serious: Yes (Other)
  Sender: FDA-Public Use
  Company Number: IT-BAUSCH-BL-2018-025906

PATIENT
  Age: 16 Year
  Sex: Male

DRUGS (3)
  1. ISOTRETINOIN. [Suspect]
     Active Substance: ISOTRETINOIN
     Indication: ACNE CONGLOBATA
     Dosage: 0.5 MG/KG/D
     Route: 065
  2. MINOCYCLINE [Suspect]
     Active Substance: MINOCYCLINE\MINOCYCLINE HYDROCHLORIDE
     Indication: ACNE CONGLOBATA
     Route: 048
  3. RETINOIDS [Suspect]
     Active Substance: UNSPECIFIED INGREDIENT
     Indication: ACNE CONGLOBATA
     Route: 061

REACTIONS (1)
  - Drug ineffective [Recovered/Resolved]
